FAERS Safety Report 6905964-X (Version None)
Quarter: 2010Q3

REPORT INFORMATION
  Report Type: 
  Country: None (occurrence: None)
  Receive Date: 20100804
  Receipt Date: 20100724
  Transmission Date: 20110219
  Serious: Yes (Hospitalization)
  Sender: FDA-Public Use
  Company Number: CA-ELI_LILLY_AND_COMPANY-CA201007006429

PATIENT
  Age: 62 Year
  Sex: Female

DRUGS (15)
  1. FORTEO [Suspect]
     Indication: OSTEOPOROSIS
     Dosage: 20 MG, DAILY (1/D)
     Route: 058
     Dates: start: 20100513
  2. IRON [Concomitant]
  3. SYNTHROID [Concomitant]
  4. ESTRACE [Concomitant]
  5. NEXIUM [Concomitant]
  6. BIAXIN [Concomitant]
  7. LACTAID [Concomitant]
  8. VITAMIN B-12 [Concomitant]
  9. ADVAIR DISKUS 100/50 [Concomitant]
  10. ALVESCO [Concomitant]
  11. CALCIUM [Concomitant]
  12. MULTI-VITAMIN [Concomitant]
  13. VITAMIN D [Concomitant]
  14. NOVO-HYDRAZIDE [Concomitant]
  15. CORTEF [Concomitant]

REACTIONS (1)
  - HOSPITALISATION [None]
